FAERS Safety Report 23908979 (Version 4)
Quarter: 2024Q4

REPORT INFORMATION
  Report Type: Report from Study
  Country: CN (occurrence: CN)
  Receive Date: 20240528
  Receipt Date: 20241008
  Transmission Date: 20250115
  Serious: Yes (Hospitalization)
  Sender: EISAI
  Company Number: CN-Eisai-EC-2024-166405

PATIENT
  Age: 53 Year
  Sex: Female
  Weight: 50 kg

DRUGS (12)
  1. ERIBULIN [Suspect]
     Active Substance: ERIBULIN
     Indication: Breast cancer metastatic
     Route: 041
     Dates: start: 20240515, end: 20240521
  2. ERIBULIN [Suspect]
     Active Substance: ERIBULIN
     Route: 042
     Dates: start: 20240528, end: 20240702
  3. CAPECITABINE [Suspect]
     Active Substance: CAPECITABINE
     Indication: Breast cancer metastatic
     Route: 048
     Dates: start: 20240515, end: 20240702
  4. MANNITOL [Concomitant]
     Active Substance: MANNITOL
     Indication: Intervertebral disc protrusion
     Route: 042
     Dates: start: 20240513
  5. GLUTATHIONE [Concomitant]
     Active Substance: GLUTATHIONE
     Indication: Hepatic failure
     Dates: start: 20240528
  6. GLUTATHIONE [Concomitant]
     Active Substance: GLUTATHIONE
     Indication: Aspartate aminotransferase increased
  7. HERBALS\DIAMMONIUM GLYCYRRHIZINATE [Concomitant]
     Active Substance: HERBALS\DIAMMONIUM GLYCYRRHIZINATE
  8. TRAMADOL HYDROCHLORIDE [Concomitant]
     Active Substance: TRAMADOL HYDROCHLORIDE
     Indication: Analgesic therapy
  9. BICYCLOL [Concomitant]
     Active Substance: BICYCLOL
  10. MAGNESIUM ISOGLYCYRRHIZINATE [Concomitant]
     Active Substance: MAGNESIUM ISOGLYCYRRHIZINATE
     Indication: Hepatic failure
     Dates: start: 20240520
  11. CEPHRADINE [Concomitant]
     Active Substance: CEPHRADINE
     Indication: Pyrexia
     Dates: start: 20240629, end: 20240702
  12. BANLANGEN [Concomitant]
     Indication: Pyrexia
     Dates: start: 20240629, end: 20240702

REACTIONS (3)
  - Alanine aminotransferase increased [Recovered/Resolved]
  - Hepatic failure [Recovered/Resolved]
  - COVID-19 [Recovered/Resolved]

NARRATIVE: CASE EVENT DATE: 20240515
